FAERS Safety Report 6811498-3 (Version None)
Quarter: 2010Q2

REPORT INFORMATION
  Report Type: 
  Country: None (occurrence: None)
  Receive Date: 20100625
  Receipt Date: 20100610
  Transmission Date: 20101027
  Serious: Yes (Life-Threatening, Hospitalization)
  Sender: FDA-Public Use
  Company Number: 1000014616

PATIENT
  Age: 30 Year
  Sex: Male

DRUGS (3)
  1. ESCITALOPRAM [Suspect]
     Dosage: ONCE, ORAL
     Route: 048
     Dates: start: 20091211, end: 20091211
  2. ALPRAZOLAM [Suspect]
     Dosage: ONCE, ORAL
     Route: 048
     Dates: start: 20091211, end: 20091211
  3. ALCOHOL [Suspect]
     Dosage: ORAL
     Route: 048
     Dates: start: 20091211, end: 20091211

REACTIONS (4)
  - ACUTE RESPIRATORY DISTRESS SYNDROME [None]
  - ASPIRATION [None]
  - COMA [None]
  - MULTIPLE DRUG OVERDOSE INTENTIONAL [None]
